FAERS Safety Report 17823355 (Version 1)
Quarter: 2020Q2

REPORT INFORMATION
  Report Type: Spontaneous
  Country: US (occurrence: US)
  Receive Date: 20200523
  Receipt Date: 20200523
  Transmission Date: 20200714
  Serious: Yes (Other)
  Sender: FDA-Public Use
  Company Number: None

PATIENT
  Age: 60 Year
  Sex: Male
  Weight: 78.75 kg

DRUGS (2)
  1. WARFARIN [Suspect]
     Active Substance: WARFARIN
  2. XARELTO [Suspect]
     Active Substance: RIVAROXABAN

REACTIONS (5)
  - Anxiety [None]
  - Product formulation issue [None]
  - Anger [None]
  - Personality change [None]
  - Thrombosis [None]
